FAERS Safety Report 9276359 (Version 2)
Quarter: 2013Q2

REPORT INFORMATION
  Report Type: Spontaneous
  Country: US (occurrence: US)
  Receive Date: 20130507
  Receipt Date: 20130510
  Transmission Date: 20140414
  Serious: No
  Sender: FDA-Public Use
  Company Number: US-PFIZER INC-2013139239

PATIENT
  Age: 44 Year
  Sex: Female
  Weight: 43.08 kg

DRUGS (2)
  1. ALPRAZOLAM [Suspect]
     Indication: ANXIETY
     Dosage: 0.5 MG, 4X/DAY
     Route: 048
     Dates: end: 201304
  2. ALPRAZOLAM [Suspect]
     Indication: BIPOLAR DISORDER
     Dosage: 0.5 MG, 4X/DAY
     Route: 048
     Dates: start: 20130429

REACTIONS (6)
  - Blood test abnormal [Unknown]
  - Sexual dysfunction [Unknown]
  - Activities of daily living impaired [Unknown]
  - Drug ineffective for unapproved indication [Unknown]
  - Crying [Unknown]
  - Off label use [Unknown]
